FAERS Safety Report 6260676-3 (Version None)
Quarter: 2009Q3

REPORT INFORMATION
  Report Type: 
  Country: None (occurrence: None)
  Receive Date: 20090706
  Receipt Date: 20090624
  Transmission Date: 20100115
  Serious: Yes (Hospitalization)
  Sender: FDA-Public Use
  Company Number: B0578771A

PATIENT
  Age: 51 Year
  Sex: Male
  Weight: 99.7913 kg

DRUGS (1)
  1. WELLBUTRIN XL [Suspect]
     Indication: EX-TOBACCO USER
     Dosage: 150 MG / ORAL
     Route: 048
     Dates: start: 20060809, end: 20060809

REACTIONS (2)
  - ACUTE CORONARY SYNDROME [None]
  - ANGINA PECTORIS [None]
